FAERS Safety Report 5692353-1 (Version None)
Quarter: 2008Q2

REPORT INFORMATION
  Report Type: 
  Country: None (occurrence: None)
  Receive Date: 20080402
  Receipt Date: 20080326
  Transmission Date: 20081010
  Serious: Yes (Other)
  Sender: FDA-Public Use
  Company Number: A0707808A

PATIENT
  Age: 82 Year
  Sex: Male
  Weight: 65.5 kg

DRUGS (1)
  1. AVODART [Suspect]
     Route: 048
     Dates: start: 20070918, end: 20070928

REACTIONS (2)
  - GYNAECOMASTIA [None]
  - TRANSMISSION OF AN INFECTIOUS AGENT VIA A MEDICINAL PRODUCT [None]
